FAERS Safety Report 6433513-1 (Version None)
Quarter: 2009Q4

REPORT INFORMATION
  Report Type: 
  Country: None (occurrence: None)
  Receive Date: 20091109
  Receipt Date: 20091016
  Transmission Date: 20100525
  Serious: Yes (Other)
  Sender: FDA-Public Use
  Company Number: US-ASTRAZENECA-2006UW22067

PATIENT
  Sex: Male
  Weight: 77.1 kg

DRUGS (7)
  1. SEROQUEL [Suspect]
     Indication: SCHIZOPHRENIA
     Dosage: 200-300MG
     Route: 048
     Dates: start: 20040101
  2. SEROQUEL [Suspect]
     Dosage: 25-1800 MG
     Route: 048
     Dates: start: 20041008
  3. RISPERIDONE [Concomitant]
  4. ZYPREXA [Concomitant]
  5. DILANTIN [Concomitant]
     Indication: CONVULSION
     Dates: start: 20020601
  6. LORTAB [Concomitant]
     Dosage: 10
     Dates: start: 20020601
  7. PHENERGAN HCL [Concomitant]
     Dates: start: 20050601

REACTIONS (3)
  - DIABETES MELLITUS [None]
  - HAEMATEMESIS [None]
  - PANCREATITIS [None]
